FAERS Safety Report 5824006-0 (Version None)
Quarter: 2008Q3

REPORT INFORMATION
  Report Type: 
  Country: None (occurrence: None)
  Receive Date: 20080728
  Receipt Date: 20080718
  Transmission Date: 20090109
  Serious: Yes (Other)
  Sender: FDA-Public Use
  Company Number: HR-JNJFOC-20080704471

PATIENT
  Age: 46 Year
  Sex: Male
  Weight: 94 kg

DRUGS (7)
  1. RISPOLEPT [Suspect]
     Indication: SCHIZOPHRENIA
     Route: 065
  2. RISPOLEPT CONSTA [Suspect]
     Indication: SCHIZOPHRENIA
     Route: 030
  3. FLUPHENAZINE [Suspect]
     Indication: DRUG USE FOR UNKNOWN INDICATION
     Route: 065
  4. SEROQUEL [Concomitant]
  5. CLOZAPINE [Concomitant]
  6. LORSILAN [Concomitant]
  7. BIPERIDEN HYDROCHLORIDE TAB [Concomitant]

REACTIONS (2)
  - AKATHISIA [None]
  - DYSKINESIA [None]
